FAERS Safety Report 18338641 (Version 1)
Quarter: 2020Q4

REPORT INFORMATION
  Report Type: Spontaneous
  Country: SE (occurrence: SE)
  Receive Date: 20201002
  Receipt Date: 20201002
  Transmission Date: 20210113
  Serious: Yes (Other)
  Sender: FDA-Public Use
  Company Number: SE-TEVA-2020-SE-1832500

PATIENT
  Age: 27 Year
  Sex: Male

DRUGS (1)
  1. VANCOMYCIN HYDROCHLORIDE. [Suspect]
     Active Substance: VANCOMYCIN HYDROCHLORIDE
     Indication: PNEUMONIA ASPIRATION
     Route: 065

REACTIONS (2)
  - Drug eruption [Unknown]
  - Erythema [Unknown]

NARRATIVE: CASE EVENT DATE: 2020
